FAERS Safety Report 23240089 (Version 2)
Quarter: 2023Q4

REPORT INFORMATION
  Report Type: Spontaneous
  Country: CN (occurrence: CN)
  Receive Date: 20231129
  Receipt Date: 20231206
  Transmission Date: 20240109
  Serious: Yes (Other)
  Sender: FDA-Public Use
  Company Number: CN-002147023-NVSC2023CN251021

PATIENT
  Age: 33 Year
  Sex: Male
  Weight: 70 kg

DRUGS (4)
  1. OXCARBAZEPINE [Suspect]
     Active Substance: OXCARBAZEPINE
     Indication: Epilepsy
     Dosage: 0.30 G, BID
     Route: 048
     Dates: start: 20231002, end: 20231012
  2. LEVETIRACETAM [Concomitant]
     Active Substance: LEVETIRACETAM
     Indication: Product used for unknown indication
     Dosage: UNK
     Route: 065
  3. ALLISARTAN ISOPROXIL [Concomitant]
     Active Substance: ALLISARTAN ISOPROXIL
     Indication: Product used for unknown indication
     Dosage: UNK
     Route: 065
  4. FELODIPINE [Concomitant]
     Active Substance: FELODIPINE
     Indication: Product used for unknown indication
     Dosage: UNK
     Route: 065

REACTIONS (6)
  - Pruritus [Recovering/Resolving]
  - Pyrexia [Recovering/Resolving]
  - Mouth ulceration [Recovering/Resolving]
  - Lip erosion [Recovering/Resolving]
  - Rash [Recovering/Resolving]
  - Lip injury [Unknown]

NARRATIVE: CASE EVENT DATE: 20231012
